FAERS Safety Report 7270465-9 (Version None)
Quarter: 2011Q1

REPORT INFORMATION
  Report Type: 
  Country: None (occurrence: None)
  Receive Date: 20110202
  Receipt Date: 20110125
  Transmission Date: 20110831
  Serious: Yes (Hospitalization, Other)
  Sender: FDA-Public Use
  Company Number: US-US-EMD SERONO, INC.-7038349

PATIENT
  Sex: Female

DRUGS (3)
  1. INSULIN [Concomitant]
     Indication: DIABETES MELLITUS
  2. REBIF [Suspect]
     Indication: MULTIPLE SCLEROSIS
     Route: 058
     Dates: start: 20090123
  3. UNSPECIFIED ANTIDEPRESSANT [Concomitant]
     Indication: NERVOUSNESS
     Dates: end: 20101201

REACTIONS (10)
  - INJECTION SITE ERYTHEMA [None]
  - INJECTION SITE MASS [None]
  - BLOOD GLUCOSE INCREASED [None]
  - DIABETIC EYE DISEASE [None]
  - INFLUENZA [None]
  - APPENDICITIS PERFORATED [None]
  - VOMITING [None]
  - INJECTION SITE PAIN [None]
  - NERVOUSNESS [None]
  - CONVERSION DISORDER [None]
